FAERS Safety Report 5285849-8 (Version None)
Quarter: 2007Q1

REPORT INFORMATION
  Report Type: 
  Country: None (occurrence: None)
  Receive Date: 20070329
  Receipt Date: 20070314
  Transmission Date: 20070707
  Serious: Yes (Other)
  Sender: FDA-Public Use
  Company Number: B0463239A

PATIENT
  Age: 31 Year
  Sex: Male

DRUGS (6)
  1. LANOXIN [Suspect]
     Indication: ATRIAL FIBRILLATION
  2. AMIODARONE (FORMULATION UNKNOWN) (DIGOXIN) [Suspect]
     Indication: ARRHYTHMIA SUPRAVENTRICULAR
     Dosage: ORAL
     Route: 048
  3. FRUSEMIDE [Concomitant]
  4. BENAZEPRIL HYDROCHLORIDE [Concomitant]
  5. ASPIRIN [Concomitant]
  6. FLUTICASONE PROPIONATE [Concomitant]

REACTIONS (7)
  - ASPARTATE AMINOTRANSFERASE INCREASED [None]
  - ATRIAL FIBRILLATION [None]
  - BLOOD UREA INCREASED [None]
  - CARDIAC MURMUR [None]
  - CARDIOACTIVE DRUG LEVEL INCREASED [None]
  - DRUG INTERACTION [None]
  - NAUSEA [None]
